FAERS Safety Report 18875929 (Version 2)
Quarter: 2023Q2

REPORT INFORMATION
  Report Type: Spontaneous
  Country: IN (occurrence: IN)
  Receive Date: 20210210
  Receipt Date: 20230403
  Transmission Date: 20230722
  Serious: Yes (Hospitalization, Other)
  Sender: FDA-Public Use
  Company Number: IN-BOEHRINGERINGELHEIM-2020-BI-064548

PATIENT
  Age: 56 Year
  Sex: Male

DRUGS (2)
  1. EMPAGLIFLOZIN [Suspect]
     Active Substance: EMPAGLIFLOZIN
     Indication: Type 2 diabetes mellitus
     Route: 065
  2. VILDAGLIPTIN [Concomitant]
     Active Substance: VILDAGLIPTIN
     Indication: Product used for unknown indication
     Route: 065

REACTIONS (3)
  - Diabetic ketoacidosis [Unknown]
  - Fournier^s gangrene [Unknown]
  - Blood glucose decreased [Unknown]
